FAERS Safety Report 17348084 (Version 1)
Quarter: 2020Q1

REPORT INFORMATION
  Report Type: Spontaneous
  Country: PT (occurrence: PT)
  Receive Date: 20200130
  Receipt Date: 20200130
  Transmission Date: 20200409
  Serious: Yes (Other)
  Sender: FDA-Public Use
  Company Number: NVSC2020PT018502

PATIENT
  Age: 43 Year
  Sex: Male

DRUGS (1)
  1. COSENTYX [Suspect]
     Active Substance: SECUKINUMAB
     Indication: PSORIASIS
     Dosage: 150 G, QW (POSOLOGIA INICIAL: 1 CANETA 1XSEMANA. A PARTIR DE 22 JULHO O DOENTE PASSOU A FAZER 2 CANE
     Route: 058
     Dates: start: 20190510, end: 20190819

REACTIONS (7)
  - Psoriasis [Recovering/Resolving]
  - Rash pustular [Recovering/Resolving]
  - Pruritus [Recovering/Resolving]
  - Alopecia [Unknown]
  - Skin lesion inflammation [Recovering/Resolving]
  - Patient dissatisfaction with treatment [Unknown]
  - Drug ineffective [Unknown]

NARRATIVE: CASE EVENT DATE: 201905
